FAERS Safety Report 25139037 (Version 1)
Quarter: 2025Q1

REPORT INFORMATION
  Report Type: Report from Study
  Country: US (occurrence: US)
  Receive Date: 20250331
  Receipt Date: 20250331
  Transmission Date: 20250408
  Serious: No
  Sender: SANDOZ
  Company Number: US-SANDOZ-SDZ2024US076439

PATIENT
  Sex: Male

DRUGS (2)
  1. OMNITROPE [Suspect]
     Active Substance: SOMATROPIN
     Indication: Noonan syndrome
     Dosage: 0.6 MG, OMNITROPE 5 MG / 1.5 ML SOLUTION FOR INJECTION
     Route: 058
  2. OMNITROPE [Suspect]
     Active Substance: SOMATROPIN
     Indication: Noonan syndrome
     Dosage: 0.6 MG, OMNITROPE 5 MG / 1.5 ML SOLUTION FOR INJECTION
     Route: 058

REACTIONS (2)
  - Off label use [Unknown]
  - Device breakage [Unknown]
